FAERS Safety Report 6766588-0 (Version None)
Quarter: 2010Q2

REPORT INFORMATION
  Report Type: 
  Country: None (occurrence: None)
  Receive Date: 20100611
  Receipt Date: 20100601
  Transmission Date: 20101027
  Serious: Yes (Other)
  Sender: FDA-Public Use
  Company Number: PHHY2010US35876

PATIENT
  Age: 13 Year
  Sex: Female

DRUGS (7)
  1. CYCLOSPORINE [Suspect]
     Indication: STEM CELL TRANSPLANT
  2. CYCLOSPORINE [Suspect]
     Indication: PROPHYLAXIS AGAINST GRAFT VERSUS HOST DISEASE
  3. RITUXIMAB [Suspect]
     Indication: PROPHYLAXIS AGAINST GRAFT VERSUS HOST DISEASE
  4. METHYLPREDNISOLONE [Suspect]
     Indication: PROPHYLAXIS AGAINST GRAFT VERSUS HOST DISEASE
  5. THIOTEPA [Suspect]
     Dosage: 5 MG/KG, BID
  6. CYCLOPHOSPHAMIDE [Suspect]
     Dosage: 60 MG/KG FOR TWO DAYS
  7. RADIATION THERAPY [Concomitant]
     Dosage: 1200 CGY

REACTIONS (4)
  - ACUTE GRAFT VERSUS HOST DISEASE IN SKIN [None]
  - HUMAN HERPESVIRUS 6 INFECTION [None]
  - MUCOSAL INFLAMMATION [None]
  - VENOOCCLUSIVE LIVER DISEASE [None]
